FAERS Safety Report 4491453-1 (Version None)
Quarter: 2004Q4

REPORT INFORMATION
  Report Type: 
  Country: None (occurrence: None)
  Receive Date: 20041102
  Receipt Date: 20041026
  Transmission Date: 20050328
  Serious: Yes (Hospitalization, Other)
  Sender: FDA-Public Use
  Company Number: 04-11-1496

PATIENT
  Age: 73 Year
  Sex: Female

DRUGS (1)
  1. CLOZAPINE [Suspect]
     Indication: PARKINSON'S DISEASE
     Dosage: 50-100 MG ORAL
     Route: 048
     Dates: start: 20040206

REACTIONS (1)
  - UROSEPSIS [None]
